FAERS Safety Report 8814632 (Version 1)
Quarter: 2012Q4

REPORT INFORMATION
  Report Type: Spontaneous
  Country: NL (occurrence: None)
  Receive Date: 20120926
  Receipt Date: 20120926
  Transmission Date: 20130627
  Serious: Yes (Other)
  Sender: FDA-Public Use
  Company Number: 2012AP003031

PATIENT
  Sex: Female

DRUGS (2)
  1. MIRTAZAPINE [Suspect]
  2. NITROFURANTOIN (NITROFURANTOIN) [Concomitant]

REACTIONS (5)
  - Restless legs syndrome [None]
  - Mental impairment [None]
  - Constipation [None]
  - Nightmare [None]
  - Periorbital oedema [None]
